FAERS Safety Report 9496296 (Version 2)
Quarter: 2013Q4

REPORT INFORMATION
  Report Type: Spontaneous
  Country: US (occurrence: US)
  Receive Date: 20130904
  Receipt Date: 20131017
  Transmission Date: 20140711
  Serious: No
  Sender: FDA-Public Use
  Company Number: US-009507513-1308USA010128

PATIENT
  Age: 62 Year
  Sex: Male
  Weight: 93.88 kg

DRUGS (9)
  1. VICTRELIS [Suspect]
     Dosage: 4 CAPSULES BY MOUTH THREE TIMES A DAY
     Route: 048
  2. REBETOL [Suspect]
     Dosage: UNK
     Route: 048
  3. PEGASYS [Suspect]
     Dosage: 180 MCG/M
  4. OMEPRAZOLE [Concomitant]
     Dosage: UNK
     Route: 048
  5. KRILL OIL [Concomitant]
     Dosage: UNK
     Route: 048
  6. VITAMIN D (UNSPECIFIED) [Concomitant]
     Dosage: 1000 UNIT
     Route: 048
  7. TYLENOL [Concomitant]
     Dosage: 325 MG
  8. NEUPOGEN [Concomitant]
     Dosage: UNKNOWN
  9. LANSOPRAZOLE [Concomitant]
     Dosage: UNKNOWN

REACTIONS (10)
  - White blood cell count decreased [Unknown]
  - Pain [Unknown]
  - Vision blurred [Unknown]
  - Pollakiuria [Not Recovered/Not Resolved]
  - Myalgia [Not Recovered/Not Resolved]
  - Dysgeusia [Unknown]
  - Fatigue [Unknown]
  - Dizziness [Not Recovered/Not Resolved]
  - Arthralgia [Not Recovered/Not Resolved]
  - Diarrhoea [Not Recovered/Not Resolved]
